FAERS Safety Report 6851195-1 (Version None)
Quarter: 2010Q3

REPORT INFORMATION
  Report Type: 
  Country: None (occurrence: None)
  Receive Date: 20100716
  Receipt Date: 20100709
  Transmission Date: 20110219
  Serious: Yes (Hospitalization, Other)
  Sender: FDA-Public Use
  Company Number: US-AMGEN-KDC420105

PATIENT
  Sex: Male
  Weight: 102 kg

DRUGS (15)
  1. DENOSUMAB [Suspect]
     Indication: PROSTATE CANCER
     Route: 058
     Dates: start: 20091013
  2. LIPITOR [Suspect]
     Route: 048
     Dates: start: 20100408
  3. METFORMIN HCL [Concomitant]
     Route: 048
     Dates: start: 20100320
  4. LISINOPRIL [Concomitant]
     Route: 048
     Dates: start: 20100412
  5. PREDNISONE [Concomitant]
     Route: 048
     Dates: start: 20100501
  6. LEVEMIR [Concomitant]
     Route: 058
     Dates: start: 20100518
  7. COUMADIN [Concomitant]
     Route: 048
     Dates: start: 20100519
  8. SIMVASTATIN [Concomitant]
     Route: 048
  9. ARICEPT [Concomitant]
     Route: 048
  10. PRILOSEC [Concomitant]
     Route: 048
  11. ALBUTEROL [Concomitant]
     Route: 055
  12. LANTUS [Concomitant]
  13. ADVAIR DISKUS 100/50 [Concomitant]
     Route: 055
  14. VERAPAMIL [Concomitant]
     Route: 048
  15. SPIRIVA [Concomitant]

REACTIONS (2)
  - LIVER FUNCTION TEST ABNORMAL [None]
  - PERIPHERAL ISCHAEMIA [None]
